FAERS Safety Report 5660363-6 (Version None)
Quarter: 2008Q1

REPORT INFORMATION
  Report Type: 
  Country: None (occurrence: None)
  Receive Date: 20080311
  Receipt Date: 20071001
  Transmission Date: 20080703
  Serious: No
  Sender: FDA-Public Use
  Company Number: US-BAYER-200713174BCC

PATIENT
  Age: 81 Year
  Sex: Female
  Weight: 80 kg

DRUGS (7)
  1. ALEVE [Suspect]
     Indication: ARTHRITIS
     Dosage: TOTAL DAILY DOSE: 220 MG  UNIT DOSE: 220 MG
     Route: 048
     Dates: start: 20070929
  2. COUMADIN [Concomitant]
  3. DILTIAZEM [Concomitant]
  4. ELAVIL [Concomitant]
  5. LASIX [Concomitant]
  6. ZOCOR [Concomitant]
  7. ICAPS [Concomitant]

REACTIONS (1)
  - OEDEMA PERIPHERAL [None]
